FAERS Safety Report 11432891 (Version 1)
Quarter: 2015Q3

REPORT INFORMATION
  Report Type: Spontaneous
  Country: DK (occurrence: DK)
  Receive Date: 20150828
  Receipt Date: 20150828
  Transmission Date: 20151125
  Serious: Yes (Disabling)
  Sender: FDA-Public Use
  Company Number: DK-BAXTER-2015BAX046446

PATIENT
  Age: 54 Year
  Sex: Female

DRUGS (5)
  1. TAXOTERE [Suspect]
     Active Substance: DOCETAXEL
     Indication: BREAST CANCER
     Route: 065
     Dates: start: 20090812
  2. FARMORUBICIN [Suspect]
     Active Substance: EPIRUBICIN HYDROCHLORIDE
     Indication: BREAST CANCER
     Route: 065
     Dates: start: 20090812
  3. TAMOXIFEN [Suspect]
     Active Substance: TAMOXIFEN
     Indication: BREAST CANCER
     Route: 065
  4. FEMARA [Suspect]
     Active Substance: LETROZOLE
     Indication: BREAST CANCER
     Route: 065
     Dates: end: 20130918
  5. SENDOXAN [Suspect]
     Active Substance: CYCLOPHOSPHAMIDE
     Indication: BREAST CANCER
     Route: 065
     Dates: start: 20090812

REACTIONS (15)
  - Skin exfoliation [Unknown]
  - Stress [Unknown]
  - Decreased activity [Not Recovered/Not Resolved]
  - Contusion [Unknown]
  - Constipation [Unknown]
  - Lymphoedema [Unknown]
  - Vomiting [Unknown]
  - Muscle spasms [Unknown]
  - Memory impairment [Not Recovered/Not Resolved]
  - Cognitive disorder [Not Recovered/Not Resolved]
  - Onychomadesis [Unknown]
  - Sensory disturbance [Not Recovered/Not Resolved]
  - Road traffic accident [Unknown]
  - Laceration [Unknown]
  - Premature menopause [Unknown]

NARRATIVE: CASE EVENT DATE: 2009
